FAERS Safety Report 9386900 (Version 3)
Quarter: 2013Q3

REPORT INFORMATION
  Report Type: Spontaneous
  Country: CH (occurrence: CH)
  Receive Date: 20130708
  Receipt Date: 20130918
  Transmission Date: 20140515
  Serious: Yes (Death)
  Sender: FDA-Public Use
  Company Number: CH-JNJFOC-20130700319

PATIENT
  Age: 92 Year
  Sex: Female
  Weight: 53 kg

DRUGS (7)
  1. XARELTO [Suspect]
     Indication: CEREBROVASCULAR ACCIDENT PROPHYLAXIS
     Route: 048
     Dates: start: 20111229, end: 20130123
  2. XARELTO [Suspect]
     Indication: ATRIAL FIBRILLATION
     Route: 048
     Dates: start: 20111229, end: 20130123
  3. DIGOXIN [Concomitant]
     Route: 048
  4. ALDACTONE [Concomitant]
     Route: 048
  5. DILZEM-RR [Concomitant]
     Route: 048
  6. ESIDREX [Concomitant]
     Route: 048
  7. NOVOMIX [Concomitant]
     Route: 058

REACTIONS (3)
  - Fall [Fatal]
  - Cerebral haemorrhage [Fatal]
  - Haematoma [Fatal]
